FAERS Safety Report 4528793-3 (Version None)
Quarter: 2004Q4

REPORT INFORMATION
  Report Type: 
  Country: None (occurrence: None)
  Receive Date: 20041214
  Receipt Date: 20041122
  Transmission Date: 20050328
  Serious: Yes (Hospitalization)
  Sender: FDA-Public Use
  Company Number: A20043615

PATIENT
  Age: 92 Year
  Sex: Female

DRUGS (1)
  1. BETAXOLOL HYDROCHLORIDE [Suspect]
     Indication: HYPERTENSION
     Dosage: 10 MG PO
     Route: 048
     Dates: end: 20040214

REACTIONS (3)
  - HYPOTHERMIA [None]
  - SHOCK [None]
  - THERAPEUTIC RESPONSE DECREASED [None]
